FAERS Safety Report 24946317 (Version 1)
Quarter: 2025Q1

REPORT INFORMATION
  Report Type: Spontaneous
  Country: US (occurrence: US)
  Receive Date: 20250210
  Receipt Date: 20250210
  Transmission Date: 20250409
  Serious: Yes (Hospitalization, Other)
  Sender: NOVO NORDISK
  Company Number: US-NOVOPROD-1363762

PATIENT
  Age: 51 Year
  Sex: Female

DRUGS (1)
  1. NOVOLOG [Suspect]
     Active Substance: INSULIN ASPART
     Indication: Type 2 diabetes mellitus
     Route: 058
     Dates: start: 2001

REACTIONS (10)
  - Ventricular assist device insertion [Recovered/Resolved]
  - Breast cancer [Recovered/Resolved]
  - Cardiac failure congestive [Recovering/Resolving]
  - Trigger finger [Recovering/Resolving]
  - Osteoarthritis [Recovering/Resolving]
  - Epistaxis [Recovered/Resolved]
  - Nasal congestion [Recovered/Resolved]
  - Cyst [Not Recovered/Not Resolved]
  - Intervertebral disc disorder [Recovering/Resolving]
  - Sinusitis [Not Recovered/Not Resolved]

NARRATIVE: CASE EVENT DATE: 20121212
